FAERS Safety Report 19119137 (Version 1)
Quarter: 2021Q2

REPORT INFORMATION
  Report Type: Report from Study
  Country: US (occurrence: US)
  Receive Date: 20210411
  Receipt Date: 20210411
  Transmission Date: 20210717
  Serious: Yes (Other)
  Sender: FDA-Public Use
  Company Number: US-UCBSA-2021016574

PATIENT
  Age: 27 Year
  Sex: Female
  Weight: 54.4 kg

DRUGS (14)
  1. DHA [Concomitant]
     Active Substance: DIETARY SUPPLEMENT
     Indication: PRODUCT USED FOR UNKNOWN INDICATION
     Dosage: 2 PILL 1 DAY
     Route: 048
     Dates: start: 20180715, end: 20190706
  2. TDAP [Concomitant]
     Active Substance: TETANUS TOXOID, REDUCED DIPHTHERIA TOXOID AND ACELLULAR PERTUSSIS VACCINE ADSORBED, TDAP
     Indication: PRODUCT USED FOR UNKNOWN INDICATION
     Dosage: 1 SHOT A DAY
     Route: 030
     Dates: start: 20190513, end: 20190513
  3. TURMERIC [CURCUMA LONGA RHIZOME] [Concomitant]
     Active Substance: HERBALS\TURMERIC
     Indication: PRODUCT USED FOR UNKNOWN INDICATION
     Dosage: 1 PILL A DAY
     Route: 048
     Dates: start: 20180920, end: 20190104
  4. GLUCOSE TOLERANCE [Concomitant]
     Indication: PRODUCT USED FOR UNKNOWN INDICATION
     Dosage: UNK
     Dates: start: 20190404, end: 20190404
  5. LEVOTHYROXINE SODIUM. [Concomitant]
     Active Substance: LEVOTHYROXINE SODIUM
     Dosage: 125 MICROGRAM, ONCE DAILY (QD)
     Route: 048
     Dates: start: 20181216, end: 20190315
  6. LEVOTHYROXINE SODIUM. [Concomitant]
     Active Substance: LEVOTHYROXINE SODIUM
     Indication: AUTOIMMUNE THYROIDITIS
     Dosage: 100 MICROGRAM, ONCE DAILY (QD)
     Route: 048
     Dates: start: 20180920, end: 20181215
  7. TYPHOID VACCINE [Concomitant]
     Active Substance: TYPHOID VACCINE
     Indication: PRODUCT USED FOR UNKNOWN INDICATION
     Dosage: 1 SHOT A DAY
     Dates: start: 20181218, end: 20181218
  8. INFLUENZA [Concomitant]
     Active Substance: INFLUENZA VIRUS VACCINE
     Indication: PRODUCT USED FOR UNKNOWN INDICATION
     Dosage: 1 SHOT A DAY
     Dates: start: 20181018, end: 20181018
  9. IRON [Concomitant]
     Active Substance: IRON
     Indication: PRODUCT USED FOR UNKNOWN INDICATION
     Dosage: 1 PILL 3.5 WEEKS
     Route: 048
     Dates: start: 20190315, end: 20190607
  10. PRENATAL VITAMINS [ASCORBIC ACID;BETACAROTENE;CALCIUM SULFATE;COLECALC [Concomitant]
     Active Substance: MINERALS\VITAMINS
     Indication: PRODUCT USED FOR UNKNOWN INDICATION
     Dosage: 3 PILLS A DAY
     Route: 048
     Dates: start: 20180815, end: 20190607
  11. VITAMIN B12 [Concomitant]
     Active Substance: CYANOCOBALAMIN
     Indication: PRODUCT USED FOR UNKNOWN INDICATION
     Dosage: 3000 INTERNATIONAL UNIT, ONCE DAILY (QD)
     Route: 048
     Dates: start: 20180920, end: 20181019
  12. CERTOLIZUMAB PEGOL RA [Suspect]
     Active Substance: CERTOLIZUMAB PEGOL
     Indication: PSORIATIC ARTHROPATHY
     Dosage: 400 MILLIGRAM, MONTHLY (QM)
     Route: 058
     Dates: start: 20180515, end: 20190607
  13. LEVOTHYROXINE SODIUM. [Concomitant]
     Active Substance: LEVOTHYROXINE SODIUM
     Dosage: 150 MICROGRAM, ONCE DAILY (QD)
     Route: 048
     Dates: start: 20190316, end: 20190607
  14. TRIAMCINOLONE ACETONIDE. [Concomitant]
     Active Substance: TRIAMCINOLONE ACETONIDE
     Indication: PSORIASIS
     Dosage: 5 TOTAL
     Route: 061
     Dates: start: 20180920, end: 20191019

REACTIONS (4)
  - Respiratory tract infection [Recovered/Resolved]
  - Food poisoning [Recovered/Resolved]
  - Urinary tract infection [Recovered/Resolved]
  - Maternal exposure before pregnancy [Unknown]

NARRATIVE: CASE EVENT DATE: 20181004
